FAERS Safety Report 25139233 (Version 1)
Quarter: 2025Q1

REPORT INFORMATION
  Report Type: Spontaneous
  Country: FR (occurrence: FR)
  Receive Date: 20250331
  Receipt Date: 20250331
  Transmission Date: 20250409
  Serious: Yes (Other)
  Sender: CELLTRION
  Company Number: None

PATIENT

DRUGS (5)
  1. INFLIXIMAB [Suspect]
     Active Substance: INFLIXIMAB
     Indication: Axial spondyloarthritis
     Route: 058
     Dates: start: 20220620, end: 202303
  2. INFLIXIMAB [Suspect]
     Active Substance: INFLIXIMAB
     Indication: HLA-B*27 positive
     Route: 058
     Dates: start: 202303, end: 20230401
  3. NAPROXEN SODIUM [Concomitant]
     Active Substance: NAPROXEN SODIUM
     Indication: Axial spondyloarthritis
     Route: 048
     Dates: start: 20220503
  4. NAPROXEN SODIUM [Concomitant]
     Active Substance: NAPROXEN SODIUM
     Indication: HLA-B*27 positive
  5. ESOMEPRAZOLE [Concomitant]
     Active Substance: ESOMEPRAZOLE
     Indication: Gastroduodenal ulcer
     Route: 048
     Dates: start: 20220503

REACTIONS (2)
  - Sjogren^s syndrome [Recovered/Resolved]
  - Intentional product use issue [Unknown]

NARRATIVE: CASE EVENT DATE: 20230401
